FAERS Safety Report 5585420-4 (Version None)
Quarter: 2008Q1

REPORT INFORMATION
  Report Type: 
  Country: None (occurrence: None)
  Receive Date: 20080109
  Receipt Date: 20080102
  Transmission Date: 20080703
  Serious: Yes (Hospitalization)
  Sender: FDA-Public Use
  Company Number: US-BAYER-200713972BCC

PATIENT
  Age: 48 Year
  Sex: Male
  Weight: 140 kg

DRUGS (2)
  1. ALEVE [Suspect]
     Indication: ARTHRALGIA
     Dosage: UNIT DOSE: 220 MG
     Route: 048
     Dates: start: 20070301
  2. ALEVE [Suspect]
     Dosage: UNIT DOSE: 220 MG
     Route: 048
     Dates: start: 20070301

REACTIONS (3)
  - BLOOD PRESSURE INCREASED [None]
  - HAEMATEMESIS [None]
  - ULCER HAEMORRHAGE [None]
